FAERS Safety Report 16214124 (Version 1)
Quarter: 2019Q2

REPORT INFORMATION
  Report Type: Spontaneous
  Country: US (occurrence: US)
  Receive Date: 20190418
  Receipt Date: 20190418
  Transmission Date: 20190711
  Serious: Yes (Other)
  Sender: FDA-Public Use
  Company Number: US-GLAXOSMITHKLINE-US2019GSK069631

PATIENT
  Age: 60 Year
  Sex: Male

DRUGS (2)
  1. ACITRETIN. [Suspect]
     Active Substance: ACITRETIN
     Indication: SKIN PAPILLOMA
     Dosage: 25 MG, QD
  2. CANDIDA ANTIGEN [Suspect]
     Active Substance: INVESTIGATIONAL PRODUCT
     Indication: SKIN PAPILLOMA
     Dosage: 0.2 CC EVERY WEEK

REACTIONS (1)
  - Renal impairment [Unknown]
